FAERS Safety Report 14995794 (Version 1)
Quarter: 2018Q2

REPORT INFORMATION
  Report Type: Spontaneous
  Country: CA (occurrence: CA)
  Receive Date: 20180611
  Receipt Date: 20180611
  Transmission Date: 20180711
  Serious: Yes (Hospitalization)
  Sender: FDA-Public Use
  Company Number: CA-ALLERGAN-1829715US

PATIENT
  Age: 21 Year
  Sex: Male
  Weight: 66 kg

DRUGS (2)
  1. ASACOL [Suspect]
     Active Substance: MESALAMINE
     Dosage: UNK
     Route: 054
  2. ASACOL [Suspect]
     Active Substance: MESALAMINE
     Indication: PRODUCT USED FOR UNKNOWN INDICATION
     Dosage: UNK
     Route: 048

REACTIONS (6)
  - Frequent bowel movements [Unknown]
  - Anaemia [Unknown]
  - Drug ineffective [Unknown]
  - Colitis ulcerative [Unknown]
  - Abdominal pain [Unknown]
  - Haematochezia [Unknown]
